FAERS Safety Report 7384627-3 (Version None)
Quarter: 2011Q1

REPORT INFORMATION
  Report Type: 
  Country: None (occurrence: None)
  Receive Date: 20110330
  Receipt Date: 20110301
  Transmission Date: 20110831
  Serious: No
  Sender: FDA-Public Use
  Company Number: US-BAYER-2011-020187

PATIENT
  Sex: Male
  Weight: 104 kg

DRUGS (5)
  1. ALEVE [Suspect]
     Indication: ARTHRITIS
     Dosage: 1 DF, BID
     Dates: start: 20100901, end: 20100901
  2. LISINOPRIL [Concomitant]
     Dosage: UNK
     Route: 048
  3. BYETTA [Concomitant]
     Dosage: UNK
  4. LEVEMIR [Concomitant]
     Dosage: UNK
  5. ACTOS [Concomitant]
     Dosage: UNK

REACTIONS (1)
  - DRUG INEFFECTIVE [None]
